FAERS Safety Report 5888720-3 (Version None)
Quarter: 2008Q3

REPORT INFORMATION
  Report Type: 
  Country: None (occurrence: None)
  Receive Date: 20080917
  Receipt Date: 20080902
  Transmission Date: 20090109
  Serious: Yes (Other)
  Sender: FDA-Public Use
  Company Number: GXKR2008KR08361

PATIENT
  Age: 66 Year
  Sex: Female

DRUGS (1)
  1. CEFAZOLIN [Suspect]
     Dosage: 50 MG UNK INTRATHECAL
     Route: 037

REACTIONS (6)
  - CEREBRAL DISORDER [None]
  - DYSARTHRIA [None]
  - DYSPHAGIA [None]
  - HYPOMETABOLISM [None]
  - POSITRON EMISSION TOMOGRAM ABNORMAL [None]
  - STATUS EPILEPTICUS [None]
